FAERS Safety Report 18838160 (Version 1)
Quarter: 2021Q1

REPORT INFORMATION
  Report Type: Spontaneous
  Country: US (occurrence: US)
  Receive Date: 20210203
  Receipt Date: 20210203
  Transmission Date: 20210419
  Serious: No
  Sender: FDA-Public Use
  Company Number: US-ALLERGAN-2023642US

PATIENT
  Sex: Female

DRUGS (2)
  1. UNKNOWN HYPOTHYROID MEDICATION [Concomitant]
     Indication: HYPOTHYROIDISM
  2. BOTOX COSMETIC [Suspect]
     Active Substance: ONABOTULINUMTOXINA
     Indication: SKIN WRINKLING
     Dosage: UNK, SINGLE

REACTIONS (2)
  - Eyelid ptosis [Recovered/Resolved]
  - Eye contusion [Recovered/Resolved]
